FAERS Safety Report 5310566-5 (Version None)
Quarter: 2007Q1

REPORT INFORMATION
  Report Type: 
  Country: None (occurrence: None)
  Receive Date: 20070201
  Receipt Date: 20061013
  Transmission Date: 20070707
  Serious: No
  Sender: FDA-Public Use
  Company Number: 257736

PATIENT
  Age: 56 Year
  Sex: Male
  Weight: 89.3 kg

DRUGS (3)
  1. LEVEMIR [Suspect]
     Indication: DIABETES MELLITUS INSULIN-DEPENDENT
     Dosage: 32 IU, QD, SUBCUTANEOUS
     Route: 058
     Dates: start: 20060401
  2. HUMULIN R [Concomitant]
  3. HUMALOG /00030501/(INSULIN) [Concomitant]

REACTIONS (1)
  - WEIGHT INCREASED [None]
